FAERS Safety Report 9577214 (Version 1)
Quarter: 2013Q4

REPORT INFORMATION
  Report Type: Spontaneous
  Country: US (occurrence: US)
  Receive Date: 20131001
  Receipt Date: 20131001
  Transmission Date: 20140711
  Serious: No
  Sender: FDA-Public Use
  Company Number: US-AMGEN-USASP2013006810

PATIENT
  Sex: Female
  Weight: 109.75 kg

DRUGS (11)
  1. ENBREL [Suspect]
     Indication: PRODUCT USED FOR UNKNOWN INDICATION
     Dosage: 50 MG, QWK
     Route: 058
  2. COUMADIN                           /00014802/ [Concomitant]
     Dosage: 6 MG, UNK
  3. TOVIAZ [Concomitant]
     Dosage: 8 MG, UNK
  4. TRAMADOL HCL [Concomitant]
     Dosage: 50 MG, UNK
  5. CITALOPRAM [Concomitant]
     Dosage: 20 MG, UNK
  6. DILTIAZEM ER [Concomitant]
     Dosage: 240 MG, UNK
  7. SIMVASTATIN [Concomitant]
     Dosage: 10 MG, UNK
  8. METOPROLOL [Concomitant]
     Dosage: 25 MG, UNK
  9. LOSARTAN POTASSIUM [Concomitant]
     Dosage: 100 MG, UNK
  10. VITAMIN D                          /00107901/ [Concomitant]
     Dosage: 1000 UNIT, UNK
  11. CALCIUM [Concomitant]
     Dosage: 500 UNK, UNK

REACTIONS (1)
  - Skin plaque [Unknown]
